FAERS Safety Report 5314889-5 (Version None)
Quarter: 2007Q2

REPORT INFORMATION
  Report Type: 
  Country: None (occurrence: None)
  Receive Date: 20070502
  Receipt Date: 20070424
  Transmission Date: 20071010
  Serious: Yes (Death)
  Sender: FDA-Public Use
  Company Number: JP-ROCHE-487932

PATIENT
  Age: 76 Year
  Sex: Male

DRUGS (8)
  1. TICLOPIDINE HCL [Suspect]
     Indication: CORONARY ARTERIAL STENT INSERTION
     Route: 048
     Dates: start: 20070216, end: 20070226
  2. ASPIRIN [Concomitant]
  3. VALSARTAN [Concomitant]
     Indication: HYPERTENSION
     Dosage: DRUG NAME REPORTED AS DIOVANE.
     Route: 048
  4. LIPIDIL [Concomitant]
     Indication: HYPERLIPIDAEMIA
     Dosage: DOSE FORM NOT REPORTED.
     Route: 048
  5. AMARYL [Concomitant]
     Indication: DIABETES MELLITUS
     Route: 048
  6. TENORMIN [Concomitant]
     Indication: HYPERTENSION
     Route: 048
  7. BASEN [Concomitant]
     Indication: HYPERTENSION
     Route: 048
  8. NIFEDIPINE [Concomitant]
     Indication: HYPERTENSION
     Dosage: DRUG NAME REPORTED AS TOWARAT.
     Route: 048

REACTIONS (3)
  - DISSEMINATED INTRAVASCULAR COAGULATION [None]
  - HEPATITIS FULMINANT [None]
  - RENAL FAILURE [None]
